FAERS Safety Report 23637134 (Version 2)
Quarter: 2024Q1

REPORT INFORMATION
  Report Type: Spontaneous
  Country: US (occurrence: US)
  Receive Date: 20240315
  Receipt Date: 20240328
  Transmission Date: 20240410
  Serious: No
  Sender: FDA-Public Use
  Company Number: US-Calliditas-2024CAL00383

PATIENT
  Age: 28 Year
  Sex: Male
  Weight: 80.73 kg

DRUGS (1)
  1. TARPEYO [Suspect]
     Active Substance: BUDESONIDE
     Indication: Proteinuria
     Dosage: 16MG (4MG CAPSULES) ONCE DAILY
     Route: 048
     Dates: start: 20231026

REACTIONS (10)
  - Abdominal pain [Unknown]
  - Abdominal pain [Unknown]
  - Abdominal discomfort [Unknown]
  - Fatigue [Recovering/Resolving]
  - Product dose omission issue [Recovered/Resolved]
  - Off label use [Unknown]
  - Hypotension [Unknown]
  - Malaise [Recovering/Resolving]
  - Illness [Unknown]
  - Cough [Unknown]
